FAERS Safety Report 7321286-X (Version None)
Quarter: 2011Q1

REPORT INFORMATION
  Report Type: 
  Country: None (occurrence: None)
  Receive Date: 20110228
  Receipt Date: 20100222
  Transmission Date: 20110831
  Serious: Yes (Hospitalization, Other)
  Sender: FDA-Public Use
  Company Number: US-PFIZER INC-2010023018

PATIENT
  Sex: Male

DRUGS (3)
  1. EFFEXOR [Concomitant]
     Dosage: UNK
  2. WELLBUTRIN [Concomitant]
     Dosage: UNK
  3. GEODON [Suspect]
     Indication: SLEEP DISORDER
     Dosage: 20 MG, 1X/DAY

REACTIONS (1)
  - GRAND MAL CONVULSION [None]
